FAERS Safety Report 17939359 (Version 2)
Quarter: 2020Q2

REPORT INFORMATION
  Report Type: Report from Study
  Country: IT (occurrence: IT)
  Receive Date: 20200624
  Receipt Date: 20200630
  Transmission Date: 20200714
  Serious: Yes (Other)
  Sender: FDA-Public Use
  Company Number: IT-ELI_LILLY_AND_COMPANY-IT202006006857

PATIENT
  Age: 76 Year
  Sex: Female

DRUGS (3)
  1. LANTUS [Interacting]
     Active Substance: INSULIN GLARGINE
     Indication: TYPE 2 DIABETES MELLITUS
     Dosage: 16 INTERNATIONAL UNIT, DAILY
     Route: 058
     Dates: start: 20140203, end: 20200522
  2. INSULIN, LISPRO [Interacting]
     Active Substance: INSULIN LISPRO
     Indication: TYPE 2 DIABETES MELLITUS
     Dosage: 19 INTERNATIONAL UNIT, DAILY
     Route: 058
     Dates: start: 20140203, end: 20200522
  3. INSULIN, LISPRO [Suspect]
     Active Substance: INSULIN LISPRO
     Indication: TYPE 2 DIABETES MELLITUS
     Dosage: 19 INTERNATIONAL UNIT, DAILY
     Route: 058
     Dates: start: 20140203, end: 20200522

REACTIONS (5)
  - Sopor [Recovering/Resolving]
  - Hypoglycaemia [Recovering/Resolving]
  - Aphasia [Recovering/Resolving]
  - Loss of consciousness [Recovering/Resolving]
  - Drug interaction [Recovering/Resolving]

NARRATIVE: CASE EVENT DATE: 20200521
